FAERS Safety Report 10469395 (Version 1)
Quarter: 2014Q3

REPORT INFORMATION
  Report Type: Spontaneous
  Country: US (occurrence: None)
  Receive Date: 20140922
  Receipt Date: 20140922
  Transmission Date: 20150326
  Serious: No
  Sender: FDA-Public Use
  Company Number: None

PATIENT
  Age: 34 Year
  Sex: Male
  Weight: 112.49 kg

DRUGS (2)
  1. ADDERALL [Suspect]
     Active Substance: AMPHETAMINE ASPARTATE\AMPHETAMINE SULFATE\DEXTROAMPHETAMINE SACCHARATE\DEXTROAMPHETAMINE SULFATE
     Indication: SLEEP DISORDER
     Dosage: 3 PILL THREE TIMES DAILY TAKEN BY MOUTH
     Route: 048
     Dates: start: 20140918, end: 20140920
  2. ADDERALL [Suspect]
     Active Substance: AMPHETAMINE ASPARTATE\AMPHETAMINE SULFATE\DEXTROAMPHETAMINE SACCHARATE\DEXTROAMPHETAMINE SULFATE
     Indication: DISTURBANCE IN ATTENTION
     Dosage: 3 PILL THREE TIMES DAILY TAKEN BY MOUTH
     Route: 048
     Dates: start: 20140918, end: 20140920

REACTIONS (4)
  - Lethargy [None]
  - Product substitution issue [None]
  - Abdominal distension [None]
  - Suspected counterfeit product [None]

NARRATIVE: CASE EVENT DATE: 20140918
